FAERS Safety Report 20552390 (Version 2)
Quarter: 2022Q2

REPORT INFORMATION
  Report Type: Spontaneous
  Country: PT (occurrence: PT)
  Receive Date: 20220304
  Receipt Date: 20220421
  Transmission Date: 20220721
  Serious: Yes (Other)
  Sender: FDA-Public Use
  Company Number: None

PATIENT
  Age: 41 Year
  Sex: Male
  Weight: 80 kg

DRUGS (5)
  1. IMRALDI [Suspect]
     Active Substance: ADALIMUMAB
     Indication: Crohn^s disease
     Dosage: WEEK ZERO
     Route: 058
     Dates: start: 20210831
  2. IMRALDI [Suspect]
     Active Substance: ADALIMUMAB
     Dosage: WEEK TWO
     Route: 058
  3. IMRALDI [Suspect]
     Active Substance: ADALIMUMAB
     Dosage: 40 MG PER 0.8 ML
     Route: 058
     Dates: end: 20220202
  4. ISONIAZID [Concomitant]
     Active Substance: ISONIAZID
     Indication: Product used for unknown indication
     Dosage: UNKNOWN
     Route: 065
  5. MESSALAZINA [Concomitant]
     Indication: Product used for unknown indication
     Dosage: UNKNOWN
     Route: 065

REACTIONS (3)
  - Dizziness [Recovered/Resolved]
  - Tachycardia [Recovered/Resolved]
  - Seborrhoeic dermatitis [Recovered/Resolved]

NARRATIVE: CASE EVENT DATE: 20211101
